FAERS Safety Report 23154535 (Version 1)
Quarter: 2023Q4

REPORT INFORMATION
  Report Type: Spontaneous
  Country: KR (occurrence: KR)
  Receive Date: 20231107
  Receipt Date: 20231107
  Transmission Date: 20240109
  Serious: No
  Sender: FDA-Public Use
  Company Number: KR-SCALL-2023-APC-034807

PATIENT

DRUGS (2)
  1. DUTASTERIDE [Suspect]
     Active Substance: DUTASTERIDE
  2. GLIVEC [Suspect]
     Active Substance: IMATINIB MESYLATE

REACTIONS (1)
  - Drug interaction [Unknown]
